FAERS Safety Report 15932051 (Version 2)
Quarter: 2019Q1

REPORT INFORMATION
  Report Type: Spontaneous
  Country: AU (occurrence: AU)
  Receive Date: 20190207
  Receipt Date: 20190215
  Transmission Date: 20190417
  Serious: Yes (Hospitalization, Other)
  Sender: FDA-Public Use
  Company Number: AU-SA-2018SA138152

PATIENT
  Age: 11 Month
  Sex: Male

DRUGS (2)
  1. MYOZYME [Suspect]
     Active Substance: ALGLUCOSIDASE ALFA
     Dosage: 20 MG/KG, QW
     Route: 041
     Dates: start: 201810
  2. MYOZYME [Suspect]
     Active Substance: ALGLUCOSIDASE ALFA
     Indication: GLYCOGEN STORAGE DISEASE TYPE II
     Dosage: 20 MG/KG, QOW
     Route: 041
     Dates: start: 20180323

REACTIONS (5)
  - Anaphylactic reaction [Unknown]
  - Product use issue [Unknown]
  - Respiratory tract infection [Unknown]
  - Disease progression [Unknown]
  - Continuous positive airway pressure [Unknown]

NARRATIVE: CASE EVENT DATE: 20180504
